FAERS Safety Report 8292139-8 (Version None)
Quarter: 2012Q2

REPORT INFORMATION
  Report Type: 
  Country: None (occurrence: None)
  Receive Date: 20120417
  Receipt Date: 20110802
  Transmission Date: 20120825
  Serious: No
  Sender: FDA-Public Use
  Company Number: US-ASTRAZENECA-2011SE34892

PATIENT
  Age: 62 Year
  Sex: Female

DRUGS (2)
  1. NEXIUM [Suspect]
     Route: 048
  2. UNSPECIFIED STEROIDS [Concomitant]

REACTIONS (3)
  - INCORRECT DOSE ADMINISTERED [None]
  - DYSPHONIA [None]
  - SINUSITIS [None]
